FAERS Safety Report 24551938 (Version 1)
Quarter: 2024Q4

REPORT INFORMATION
  Report Type: Spontaneous
  Country: FR (occurrence: FR)
  Receive Date: 20241026
  Receipt Date: 20241026
  Transmission Date: 20250115
  Serious: Yes (Life-Threatening)
  Sender: ABBVIE
  Company Number: None

PATIENT
  Age: 42 Year
  Sex: Female
  Weight: 65 kg

DRUGS (5)
  1. BOTOX [Suspect]
     Active Substance: ONABOTULINUMTOXINA
     Indication: Product used for unknown indication
     Dosage: TIME INTERVAL: AS NECESSARY: 40 UI
     Route: 030
     Dates: start: 20240903, end: 20240903
  2. RIVOTRIL [Suspect]
     Active Substance: CLONAZEPAM
     Indication: Tonic clonic movements
     Dosage: 1 MG/1 J
     Route: 042
     Dates: start: 20240910, end: 20240910
  3. LEVOFLOXACIN [Suspect]
     Active Substance: LEVOFLOXACIN
     Indication: Pneumonia aspiration
     Dosage: 1000 MG/1 J
     Route: 042
     Dates: start: 20240906, end: 20240911
  4. SUCCINYLCHOLINE [Suspect]
     Active Substance: SUCCINYLCHOLINE\SUCCINYLCHOLINE CHLORIDE
     Indication: Induction of anaesthesia
     Dosage: 70 MG/1 J
     Route: 042
     Dates: start: 20240903, end: 20240903
  5. ROCURONIUM BROMIDE [Suspect]
     Active Substance: ROCURONIUM BROMIDE
     Indication: Anaesthesia
     Dosage: 100 MG/1 J
     Route: 042
     Dates: start: 20240904, end: 20240904

REACTIONS (3)
  - Condition aggravated [Not Recovered/Not Resolved]
  - Condition aggravated [Not Recovered/Not Resolved]
  - Myasthenia gravis [Not Recovered/Not Resolved]

NARRATIVE: CASE EVENT DATE: 20240903
